FAERS Safety Report 15565043 (Version 3)
Quarter: 2019Q2

REPORT INFORMATION
  Report Type: Report from Study
  Country: DE (occurrence: DE)
  Receive Date: 20181030
  Receipt Date: 20190617
  Transmission Date: 20190711
  Serious: No
  Sender: FDA-Public Use
  Company Number: DE-ROCHE-2206420

PATIENT
  Age: 43 Year
  Sex: Female

DRUGS (7)
  1. FAMPYRA [Concomitant]
     Active Substance: DALFAMPRIDINE
     Dosage: IN THE EVENING AS REQUIRED
     Route: 065
  2. OCREVUS [Suspect]
     Active Substance: OCRELIZUMAB
     Route: 042
     Dates: start: 20190321
  3. OCREVUS [Suspect]
     Active Substance: OCRELIZUMAB
     Indication: RELAPSING-REMITTING MULTIPLE SCLEROSIS
     Route: 042
     Dates: start: 20180830
  4. CITALOPRAM [Concomitant]
     Active Substance: CITALOPRAM HYDROBROMIDE
  5. CANNABIDIOL [Concomitant]
     Active Substance: CANNABIDIOL
     Dosage: CANNABIDIOL HEMP
     Route: 065
  6. PANTOPRAZOL [PANTOPRAZOLE] [Concomitant]
     Active Substance: PANTOPRAZOLE
     Route: 065
  7. GABAPENTIN. [Concomitant]
     Active Substance: GABAPENTIN

REACTIONS (6)
  - Gastrointestinal infection [Recovered/Resolved]
  - Influenza [Recovering/Resolving]
  - Vomiting [Not Recovered/Not Resolved]
  - Fatigue [Recovered/Resolved]
  - Headache [Recovered/Resolved]
  - Seasonal allergy [Recovered/Resolved]

NARRATIVE: CASE EVENT DATE: 20180830
